FAERS Safety Report 4506857-8 (Version None)
Quarter: 2004Q4

REPORT INFORMATION
  Report Type: 
  Country: None (occurrence: None)
  Receive Date: 20041117
  Receipt Date: 20041105
  Transmission Date: 20050328
  Serious: Yes (Hospitalization)
  Sender: FDA-Public Use
  Company Number: RS004775-USA

PATIENT
  Age: 52 Year
  Sex: Female

DRUGS (9)
  1. ACIPHEX [Suspect]
     Indication: GASTROOESOPHAGEAL REFLUX DISEASE
     Dosage: 60 MG, 1 IN 1 D, ORAL
     Route: 048
  2. PROVIGIL [Suspect]
     Indication: FATIGUE
     Dosage: SEE IMAGE
     Route: 048
     Dates: start: 20040901, end: 20040901
  3. PROVIGIL [Suspect]
     Indication: FATIGUE
     Dosage: SEE IMAGE
     Route: 048
     Dates: start: 20040914, end: 20040914
  4. PROVIGIL [Suspect]
     Indication: FATIGUE
     Dosage: SEE IMAGE
     Route: 048
     Dates: start: 20020301
  5. KLONOPIN [Suspect]
     Dosage: 2.25 MG, 1 IN 1 D, ORAL
     Route: 048
  6. NEURONTIN [Suspect]
     Dosage: 1200 MG, 1 IN 1 D, ORAL
     Route: 048
  7. HYDROCHLOROTHIAZIDE [Suspect]
     Indication: DIURETIC THERAPY
     Dosage: 100 MG, 1 IN 1 D, ORAL
     Route: 048
  8. DORYX [Suspect]
     Dosage: 100 MG, 1 IN 1 D, ORAL
     Route: 048
  9. LEXAPRO [Suspect]
     Indication: DEPRESSION
     Dosage: 10 MG, 1 IN 1 D, ORAL
     Route: 048

REACTIONS (6)
  - BALANCE DISORDER [None]
  - CHILLS [None]
  - DISORIENTATION [None]
  - INFLUENZA LIKE ILLNESS [None]
  - NAUSEA [None]
  - VOMITING [None]
